FAERS Safety Report 23011731 (Version 2)
Quarter: 2023Q4

REPORT INFORMATION
  Report Type: Spontaneous
  Country: PL (occurrence: PL)
  Receive Date: 20230929
  Receipt Date: 20231012
  Transmission Date: 20240110
  Serious: Yes (Life-Threatening, Other)
  Sender: FDA-Public Use
  Company Number: PL-SANDOZ-SDZ2023PL028828

PATIENT
  Sex: Female

DRUGS (3)
  1. AZITHROMYCIN [Suspect]
     Active Substance: AZITHROMYCIN
     Indication: Bronchiolitis obliterans syndrome
     Dosage: UNK
     Route: 065
     Dates: start: 2020
  2. MONTELUKAST [Suspect]
     Active Substance: MONTELUKAST SODIUM
     Indication: Bronchiolitis obliterans syndrome
     Dosage: UNK
     Route: 065
     Dates: start: 2020
  3. CICLESONIDE [Suspect]
     Active Substance: CICLESONIDE
     Indication: Bronchiolitis obliterans syndrome
     Dosage: UNK
     Route: 065
     Dates: start: 2020

REACTIONS (3)
  - Bronchiolitis obliterans syndrome [Unknown]
  - Disease progression [Unknown]
  - Off label use [Unknown]

NARRATIVE: CASE EVENT DATE: 20200101
